FAERS Safety Report 4686397-6 (Version None)
Quarter: 2005Q2

REPORT INFORMATION
  Report Type: 
  Country: None (occurrence: None)
  Receive Date: 20050606
  Receipt Date: 20050526
  Transmission Date: 20051028
  Serious: Yes (Other)
  Sender: FDA-Public Use
  Company Number: 2005081552

PATIENT
  Age: 77 Year
  Sex: Male
  Weight: 78.9259 kg

DRUGS (6)
  1. LIPITOR [Suspect]
     Indication: LIPID METABOLISM DISORDER
     Dosage: 10 MG (10 MG, 1 IN 1 D), ORAL
     Route: 048
     Dates: start: 20050513, end: 20050515
  2. ADALAT XL (NIFEDIPINE) [Concomitant]
  3. NITRO-DUR [Concomitant]
  4. METOPROLOL TARTRATE [Concomitant]
  5. FUROSEMIDE [Concomitant]
  6. FLAVOXATE [Concomitant]

REACTIONS (2)
  - DIZZINESS [None]
  - URINARY INCONTINENCE [None]
